FAERS Safety Report 8214379-6 (Version None)
Quarter: 2012Q1

REPORT INFORMATION
  Report Type: 
  Country: None (occurrence: None)
  Receive Date: 20120316
  Receipt Date: 20120305
  Transmission Date: 20120608
  Serious: Yes (Life-Threatening, Other)
  Sender: FDA-Public Use
  Company Number: TR-JNJFOC-20120211737

PATIENT
  Sex: Female
  Weight: 76 kg

DRUGS (5)
  1. REMICADE [Suspect]
     Indication: PSORIATIC ARTHROPATHY
     Dosage: RECEIVED APPROXIMATELY 26 INFUSIONS MORE THAN 3 YEARS
     Route: 042
     Dates: start: 20080313, end: 20120105
  2. METHOTREXATE [Concomitant]
     Indication: ARTHRITIS
     Dates: start: 20080313
  3. REMICADE [Suspect]
     Indication: PSORIASIS
     Dosage: RECEIVED APPROXIMATELY 26 INFUSIONS MORE THAN 3 YEARS
     Route: 042
     Dates: start: 20080313, end: 20120105
  4. INH [Concomitant]
     Indication: PROPHYLAXIS
     Dates: start: 20080313, end: 20081201
  5. REMICADE [Suspect]
     Dosage: RECEIVED APPROXIMATELY 26 INFUSIONS MORE THAN 3 YEARS
     Route: 042
     Dates: start: 20080313, end: 20120105

REACTIONS (1)
  - COLON CANCER [None]
